FAERS Safety Report 6680759-3 (Version None)
Quarter: 2010Q2

REPORT INFORMATION
  Report Type: 
  Country: None (occurrence: None)
  Receive Date: 20100414
  Receipt Date: 20100311
  Transmission Date: 20101027
  Serious: No
  Sender: FDA-Public Use
  Company Number: US-BAYER-201013168BCC

PATIENT
  Age: 66 Year
  Sex: Female
  Weight: 69 kg

DRUGS (8)
  1. ALEVE (CAPLET) [Suspect]
     Indication: ARTHRALGIA
     Route: 048
  2. ASPIRIN [Suspect]
     Indication: DRUG USE FOR UNKNOWN INDICATION
     Dosage: UNIT DOSE: 81 MG
     Route: 048
     Dates: start: 20100310
  3. VITAMINS [Concomitant]
  4. EQUATE ASPIRIN [Concomitant]
  5. DIAZIDE [Concomitant]
  6. PREDNISOLONE [Concomitant]
  7. PRILOSEC [Concomitant]
  8. IBUPROFEN [Concomitant]

REACTIONS (2)
  - ARTHRALGIA [None]
  - RASH [None]
